FAERS Safety Report 7366861-1 (Version None)
Quarter: 2011Q1

REPORT INFORMATION
  Report Type: 
  Country: None (occurrence: None)
  Receive Date: 20110322
  Receipt Date: 20110314
  Transmission Date: 20110831
  Serious: Yes (Hospitalization)
  Sender: FDA-Public Use
  Company Number: A0886843A

PATIENT
  Age: 51 Year
  Sex: Female
  Weight: 100 kg

DRUGS (1)
  1. AVANDAMET [Suspect]
     Route: 048
     Dates: start: 20041122, end: 20060206

REACTIONS (6)
  - MYOCARDIAL INFARCTION [None]
  - ARRHYTHMIA [None]
  - STENT PLACEMENT [None]
  - CARDIAC FAILURE CONGESTIVE [None]
  - ISCHAEMIC CARDIOMYOPATHY [None]
  - CEREBROVASCULAR ACCIDENT [None]
